FAERS Safety Report 13356741 (Version 1)
Quarter: 2017Q1

REPORT INFORMATION
  Report Type: Spontaneous
  Country: FI (occurrence: FI)
  Receive Date: 20170321
  Receipt Date: 20170321
  Transmission Date: 20170429
  Serious: Yes (Other)
  Sender: FDA-Public Use
  Company Number: FI-TEVA-747910ISR

PATIENT
  Age: 75 Year
  Sex: Female

DRUGS (3)
  1. CANDESARTAN 16 MG [Suspect]
     Active Substance: CANDESARTAN
     Indication: MIGRAINE
     Route: 065
  2. ESTRADIOL 1 MG [Suspect]
     Active Substance: ESTRADIOL
     Indication: HORMONE REPLACEMENT THERAPY
     Route: 065
  3. LATANOPROST. [Suspect]
     Active Substance: LATANOPROST

REACTIONS (11)
  - Peripheral swelling [Recovered/Resolved]
  - Pulmonary embolism [Recovered/Resolved]
  - Pulmonary thrombosis [Recovered/Resolved]
  - Presyncope [Recovered/Resolved]
  - Atrioventricular block first degree [Recovered/Resolved]
  - Thrombosis [Recovered/Resolved]
  - Heart rate increased [Recovered/Resolved]
  - Blood pressure fluctuation [Recovered/Resolved]
  - Asthenia [Recovered/Resolved]
  - Hypertension [Recovered/Resolved]
  - Malaise [Recovered/Resolved]
